FAERS Safety Report 21616202 (Version 1)
Quarter: 2022Q4

REPORT INFORMATION
  Report Type: Spontaneous
  Country: JP (occurrence: JP)
  Receive Date: 20221118
  Receipt Date: 20221118
  Transmission Date: 20230113
  Serious: Yes (Death, Hospitalization)
  Sender: FDA-Public Use
  Company Number: JP-SCALL-2022-JP-000496

PATIENT
  Age: 81 Year
  Sex: Female

DRUGS (19)
  1. RABEPRAZOLE SODIUM [Suspect]
     Active Substance: RABEPRAZOLE SODIUM
     Indication: Product used for unknown indication
     Dosage: 1 D
     Route: 048
  2. AMLODIPINE BESYLATE [Concomitant]
     Active Substance: AMLODIPINE BESYLATE
     Dosage: 1 D
     Route: 048
  3. LYRICA [Suspect]
     Active Substance: PREGABALIN
     Dosage: 12 HR
     Route: 048
  4. HERBALS\TARAXACUM OFFICINALE [Concomitant]
     Active Substance: HERBALS\TARAXACUM OFFICINALE
     Dosage: 1 D/ 8 HR
     Route: 048
     Dates: start: 2022
  5. LIVALO [Concomitant]
     Active Substance: PITAVASTATIN CALCIUM
     Dosage: 8 HR
     Route: 048
     Dates: end: 20221017
  6. CLOTIAZEPAM [Concomitant]
     Active Substance: CLOTIAZEPAM
     Dosage: 12 HR
     Route: 065
     Dates: end: 20221017
  7. ONEALFA [Concomitant]
     Active Substance: ALFACALCIDOL
     Dosage: 1 D
     Route: 065
     Dates: end: 20221017
  8. MAGNESIUM OXIDE [Concomitant]
     Active Substance: MAGNESIUM OXIDE
     Dosage: 1 D/ 12 HR
     Route: 065
     Dates: start: 2022
  9. PETROLATUM [Concomitant]
     Active Substance: PETROLATUM
     Dosage: 1 D
     Route: 065
  10. LOXOPROFEN SODIUM DIHYDRATE [Concomitant]
     Active Substance: LOXOPROFEN SODIUM DIHYDRATE
  11. PREDNISOLONE [Concomitant]
     Active Substance: PREDNISOLONE
     Dosage: 12 HR
     Route: 065
  12. DAYVIGO [Suspect]
     Active Substance: LEMBOREXANT
  13. FILGOTINIB [Suspect]
     Active Substance: FILGOTINIB
     Dosage: 200 MG, 1 D
     Route: 048
     Dates: start: 20220623, end: 20221017
  14. HERBALS [Suspect]
     Active Substance: HERBALS
     Dosage: 12 HR
     Route: 048
     Dates: end: 20221017
  15. TRESIBA [Suspect]
     Active Substance: INSULIN DEGLUDEC
     Route: 065
  16. FOLIC ACID [Concomitant]
     Active Substance: FOLIC ACID
     Route: 065
  17. METHYLCOBALAMIN [Concomitant]
     Active Substance: METHYLCOBALAMIN
     Route: 048
  18. OPALMON [Concomitant]
     Active Substance: LIMAPROST
     Route: 065
  19. LOXOPROFEN SODIUM [Concomitant]
     Active Substance: LOXOPROFEN SODIUM
     Route: 065

REACTIONS (1)
  - Interstitial lung disease [Fatal]

NARRATIVE: CASE EVENT DATE: 20221017
